FAERS Safety Report 13035708 (Version 3)
Quarter: 2017Q1

REPORT INFORMATION
  Report Type: Report from Study
  Country: None (occurrence: BE)
  Receive Date: 20161216
  Receipt Date: 20170126
  Transmission Date: 20170428
  Serious: Yes (Hospitalization)
  Sender: FDA-Public Use
  Company Number: BE-ABBVIE-16P-013-1654110-00

PATIENT
  Sex: Female

DRUGS (5)
  1. DUODOPA [Suspect]
     Active Substance: CARBIDOPA\LEVODOPA
     Indication: PARKINSON^S DISEASE
     Dosage: AM=4ML; CD=1.7 ML/H DURING 16 HRS; ED=1 ML
     Route: 050
     Dates: start: 20110207, end: 20110210
  2. DUODOPA [Suspect]
     Active Substance: CARBIDOPA\LEVODOPA
     Dosage: AM=4 ML; CD=2.6 ML/H DURING 16 HRS; ED=1.5 ML
     Route: 050
     Dates: start: 2016
  3. STALEVO [Concomitant]
     Active Substance: CARBIDOPA\ENTACAPONE\LEVODOPA
     Indication: PRODUCT USED FOR UNKNOWN INDICATION
     Dosage: FORM STRENGTH: 50MG/12.5MG/200MG
  4. DUODOPA [Suspect]
     Active Substance: CARBIDOPA\LEVODOPA
     Dosage: AM= 4 ML; CD= 2.6 ML/H DURING 16 HRS; ED= 1.5 ML
     Route: 050
     Dates: start: 20150914, end: 2016
  5. DUODOPA [Suspect]
     Active Substance: CARBIDOPA\LEVODOPA
     Dosage: DOSES CONTINUOUSLY MONITORED AND ADAPTED
     Route: 050
     Dates: start: 20110210, end: 20150914

REACTIONS (6)
  - Device dislocation [Not Recovered/Not Resolved]
  - Upper limb fracture [Unknown]
  - Mental disorder [Unknown]
  - Cognitive disorder [Unknown]
  - Incorrect route of drug administration [Not Recovered/Not Resolved]
  - Gait disturbance [Unknown]

NARRATIVE: CASE EVENT DATE: 2016
